FAERS Safety Report 25312169 (Version 1)
Quarter: 2025Q2

REPORT INFORMATION
  Report Type: Spontaneous
  Country: US (occurrence: US)
  Receive Date: 20250510
  Receipt Date: 20250510
  Transmission Date: 20250717
  Serious: Yes (Other)
  Sender: NOVO NORDISK
  Company Number: US-NOVOPROD-1415017

PATIENT
  Age: 65 Year
  Sex: Female

DRUGS (3)
  1. WEGOVY [Suspect]
     Active Substance: SEMAGLUTIDE
     Dates: start: 202502
  2. WEGOVY [Suspect]
     Active Substance: SEMAGLUTIDE
     Dates: end: 202410
  3. WEGOVY [Suspect]
     Active Substance: SEMAGLUTIDE
     Indication: Weight control
     Dates: start: 2024

REACTIONS (9)
  - Eye swelling [Recovered/Resolved]
  - Normal pressure hydrocephalus [Recovered/Resolved]
  - Unevaluable event [Unknown]
  - Illness [Not Recovered/Not Resolved]
  - Haemoglobin decreased [Recovering/Resolving]
  - Gait disturbance [Unknown]
  - Gastroenteritis viral [Not Recovered/Not Resolved]
  - Nausea [Unknown]
  - Vomiting [Recovered/Resolved]

NARRATIVE: CASE EVENT DATE: 20240101
